FAERS Safety Report 15258371 (Version 1)
Quarter: 2018Q3

REPORT INFORMATION
  Report Type: Spontaneous
  Country: US (occurrence: US)
  Receive Date: 20180809
  Receipt Date: 20180809
  Transmission Date: 20181010
  Serious: Yes (Life-Threatening)
  Sender: FDA-Public Use
  Company Number: US-SCIEGEN PHARMACEUTICALS INC-2018SCILIT00528

PATIENT
  Age: 47 Year
  Sex: Male

DRUGS (3)
  1. ASPIRIN. [Suspect]
     Active Substance: ASPIRIN
     Indication: THROMBOSIS PROPHYLAXIS
     Dosage: UNKNOWN
     Route: 065
  2. ASPIRIN. [Suspect]
     Active Substance: ASPIRIN
     Dosage: UNKNOWN
     Route: 065
  3. CLOPIDOGREL [Suspect]
     Active Substance: CLOPIDOGREL BISULFATE
     Indication: THROMBOSIS PROPHYLAXIS
     Dosage: UNKNOWN
     Route: 065

REACTIONS (1)
  - Pulmonary alveolar haemorrhage [Recovered/Resolved]
